FAERS Safety Report 15234783 (Version 2)
Quarter: 2018Q3

REPORT INFORMATION
  Report Type: Spontaneous
  Country: JP (occurrence: JP)
  Receive Date: 20180803
  Receipt Date: 20180822
  Transmission Date: 20181010
  Serious: Yes (Hospitalization, Other)
  Sender: FDA-Public Use
  Company Number: JP-TEVA-2018-JP-003965J

PATIENT
  Age: 60 Year
  Sex: Female

DRUGS (4)
  1. POLARAMINE [Suspect]
     Active Substance: DEXCHLORPHENIRAMINE MALEATE
     Indication: PREMEDICATION
     Dosage: 5 MILLIGRAM DAILY;
     Route: 041
     Dates: start: 20180727, end: 20180727
  2. SEISHOKU [Concomitant]
     Active Substance: SODIUM CHLORIDE
     Dosage: 100 ML DAILY;
     Route: 041
     Dates: start: 20180727
  3. RANITIDINE INJECTION 50MG  ^TAIYO^ [Suspect]
     Active Substance: RANITIDINE
     Indication: PREMEDICATION
     Route: 041
     Dates: start: 20180727, end: 20180727
  4. DECADRON [Suspect]
     Active Substance: DEXAMETHASONE
     Indication: PREMEDICATION
     Dosage: 6.6 MILLIGRAM DAILY;
     Route: 041
     Dates: start: 20180727, end: 20180727

REACTIONS (7)
  - Oxygen saturation decreased [Unknown]
  - Anaphylactic reaction [Recovered/Resolved]
  - Hypersensitivity [Unknown]
  - Pruritus [Unknown]
  - Hyperhidrosis [Unknown]
  - Drug eruption [Unknown]
  - Nausea [Unknown]

NARRATIVE: CASE EVENT DATE: 20180727
